FAERS Safety Report 5007953-1 (Version None)
Quarter: 2006Q2

REPORT INFORMATION
  Report Type: 
  Country: None (occurrence: None)
  Receive Date: 20060517
  Receipt Date: 20060508
  Transmission Date: 20061013
  Serious: Yes (Other)
  Sender: FDA-Public Use
  Company Number: 2006061623

PATIENT
  Age: 39 Year
  Sex: Male

DRUGS (2)
  1. NORVASC [Suspect]
     Indication: ILL-DEFINED DISORDER
     Dosage: UNKNOWN (5 MG, UNKNOWN), ORAL
     Route: 048
     Dates: start: 20050901, end: 20060301
  2. ADCO-RETIC             (AMILORIDE HYDROCHLORIDE, HYDROCHLOROTHIAZIDE) [Concomitant]

REACTIONS (2)
  - CARDIAC DISORDER [None]
  - STEVENS-JOHNSON SYNDROME [None]
